FAERS Safety Report 13593454 (Version 1)
Quarter: 2017Q2

REPORT INFORMATION
  Report Type: Spontaneous
  Country: US (occurrence: US)
  Receive Date: 20170530
  Receipt Date: 20170530
  Transmission Date: 20170830
  Serious: Yes (Other)
  Sender: FDA-Public Use
  Company Number: US-SA-2017SA096671

PATIENT
  Sex: Female

DRUGS (2)
  1. TOUJEO [Suspect]
     Active Substance: INSULIN GLARGINE
     Indication: DIABETES MELLITUS
     Dosage: DOSE:24 UNIT(S)
     Route: 051
     Dates: start: 201704
  2. SOLOSTAR [Concomitant]
     Active Substance: DEVICE
     Dates: start: 201704

REACTIONS (3)
  - Weight increased [Unknown]
  - Cardiac disorder [Unknown]
  - Blood glucose increased [Unknown]
